FAERS Safety Report 8140294-2 (Version None)
Quarter: 2012Q1

REPORT INFORMATION
  Report Type: 
  Country: None (occurrence: None)
  Receive Date: 20120216
  Receipt Date: 20120209
  Transmission Date: 20120608
  Serious: No
  Sender: FDA-Public Use
  Company Number: US-PFIZER INC-2012036681

PATIENT
  Sex: Female

DRUGS (2)
  1. TIMOLOL MALEATE [Suspect]
     Dosage: UNK
  2. LATANOPROST [Suspect]
     Dosage: UNK

REACTIONS (2)
  - ERYTHEMA [None]
  - MADAROSIS [None]
